FAERS Safety Report 6964470-7 (Version None)
Quarter: 2010Q3

REPORT INFORMATION
  Report Type: 
  Country: None (occurrence: None)
  Receive Date: 20100903
  Receipt Date: 20100823
  Transmission Date: 20110219
  Serious: Yes (Other)
  Sender: FDA-Public Use
  Company Number: GB-PFIZER INC-2010105798

PATIENT
  Age: 74 Year
  Sex: Male

DRUGS (3)
  1. LYRICA [Suspect]
     Indication: GENERALISED ANXIETY DISORDER
     Dosage: 150 MG, 3X/DAY
  2. LYRICA [Interacting]
     Dosage: 425 MG, UNK
  3. INSULIN [Interacting]
     Indication: DIABETES MELLITUS
     Dosage: UNK

REACTIONS (9)
  - DRUG INTERACTION [None]
  - DYSKINESIA [None]
  - FEELING ABNORMAL [None]
  - HYPERACUSIS [None]
  - MALAISE [None]
  - PAIN [None]
  - RHINORRHOEA [None]
  - SLEEP DISORDER [None]
  - WITHDRAWAL SYNDROME [None]
